FAERS Safety Report 7900572-6 (Version None)
Quarter: 2011Q4

REPORT INFORMATION
  Report Type: 
  Country: None (occurrence: None)
  Receive Date: 20111104
  Receipt Date: 20111019
  Transmission Date: 20120403
  Serious: No
  Sender: FDA-Public Use
  Company Number: 2011P1009568

PATIENT
  Age: 18 Year
  Sex: Male

DRUGS (6)
  1. CYCLOSERINE [Suspect]
     Indication: TUBERCULOSIS
  2. OFLOXACIN [Suspect]
     Indication: TUBERCULOSIS
  3. KANAMYCIN [Concomitant]
  4. PYRAZINAMIDE [Concomitant]
  5. ETHAMBUTOL HYDROCHLORIDE [Suspect]
     Indication: TUBERCULOSIS
  6. ETHIONAMIDE (NO PREF. NAME) [Suspect]
     Indication: TUBERCULOSIS

REACTIONS (5)
  - PERSECUTORY DELUSION [None]
  - SOMNOLENCE [None]
  - PSYCHOTIC DISORDER [None]
  - DELUSION OF REFERENCE [None]
  - HALLUCINATIONS, MIXED [None]
